FAERS Safety Report 5940630-9 (Version None)
Quarter: 2008Q4

REPORT INFORMATION
  Report Type: 
  Country: None (occurrence: None)
  Receive Date: 20081030
  Receipt Date: 20081014
  Transmission Date: 20090506
  Serious: Yes (Hospitalization)
  Sender: FDA-Public Use
  Company Number: DSA_32579_2008

PATIENT
  Age: 84 Year
  Sex: Male

DRUGS (5)
  1. MASDIL (MASDIL- DILTIAZEM HYDROCHLORIDE) 60 MG (NOT SPECIFIED) [Suspect]
     Indication: HYPERTENSION
     Dosage: (60 MG, ORAL)
     Route: 048
     Dates: start: 20020101, end: 20080119
  2. TRANSDERM NITRO (NITROGLYCERINE) 80 MG (NOT SPECIFIED) [Suspect]
     Indication: MYOCARDIAL ISCHAEMIA
     Dosage: (80 MG, TRANSDERMAL)
     Route: 062
     Dates: start: 20060101
  3. FUROSEMIDE [Suspect]
     Indication: HYPERTENSION
     Dosage: (40 MG, ORAL)
     Route: 048
     Dates: start: 20020101, end: 20080119
  4. CARVEDILOL [Suspect]
     Indication: HYPERTENSION
     Dosage: (DF ORAL)
     Route: 048
     Dates: start: 20020101, end: 20080119
  5. PANTOPRAZOLE SODIUM [Concomitant]

REACTIONS (6)
  - CEREBROVASCULAR ACCIDENT [None]
  - HYPOKALAEMIA [None]
  - JAUNDICE [None]
  - MALAISE [None]
  - NAUSEA [None]
  - RENAL FAILURE ACUTE [None]
